FAERS Safety Report 10666353 (Version 1)
Quarter: 2014Q4

REPORT INFORMATION
  Report Type: Spontaneous
  Country: US (occurrence: US)
  Receive Date: 20141220
  Receipt Date: 20141220
  Transmission Date: 20150529
  Serious: No
  Sender: FDA-Public Use
  Company Number: US-BAUSCH-SYM-2014-20618

PATIENT
  Sex: Female

DRUGS (3)
  1. XENAZINE [Suspect]
     Active Substance: TETRABENAZINE
     Indication: HUNTINGTON^S DISEASE
     Dosage: 1 TABLET, TWICE DAILY
     Route: 048
     Dates: start: 20131122, end: 201403
  2. XENAZINE [Suspect]
     Active Substance: TETRABENAZINE
     Dosage: 1 TABLET, TWICE DAILY
     Route: 048
     Dates: start: 2014
  3. XENAZINE [Suspect]
     Active Substance: TETRABENAZINE
     Dosage: 1 TABLET, 3 TIMES DAILY
     Route: 048
     Dates: start: 201403, end: 2014

REACTIONS (2)
  - Anger [Unknown]
  - Lip dry [Unknown]
